FAERS Safety Report 19101533 (Version 1)
Quarter: 2021Q2

REPORT INFORMATION
  Report Type: Spontaneous
  Country: US (occurrence: US)
  Receive Date: 20210406
  Receipt Date: 20210406
  Transmission Date: 20210717
  Serious: Yes (Hospitalization)
  Sender: FDA-Public Use
  Company Number: None

PATIENT
  Age: 77 Year
  Sex: Male

DRUGS (12)
  1. LIPITOR [Concomitant]
     Active Substance: ATORVASTATIN CALCIUM
  2. LYRICA [Concomitant]
     Active Substance: PREGABALIN
  3. AZITHROMYCIN ANHYDROUS. [Concomitant]
     Active Substance: AZITHROMYCIN ANHYDROUS
  4. PREGABALIN. [Concomitant]
     Active Substance: PREGABALIN
  5. ALLOPURINOL. [Concomitant]
     Active Substance: ALLOPURINOL
  6. EZETIMBE [Concomitant]
     Active Substance: EZETIMIBE
  7. LEVOFLOXACIN. [Concomitant]
     Active Substance: LEVOFLOXACIN
  8. OLMESA MEDOX [Concomitant]
  9. TOBRAMYCIN INJ 40MGL/ML [Suspect]
     Active Substance: TOBRAMYCIN
     Indication: BLADDER DISORDER
     Route: 058
     Dates: start: 20200927
  10. TAMSULOSIN [Concomitant]
     Active Substance: TAMSULOSIN
  11. PRAVASTATIN. [Concomitant]
     Active Substance: PRAVASTATIN
  12. XIIDRA [Concomitant]
     Active Substance: LIFITEGRAST

REACTIONS (5)
  - Dysarthria [None]
  - Pathogen resistance [None]
  - Urinary tract infection [None]
  - Confusional state [None]
  - Fall [None]

NARRATIVE: CASE EVENT DATE: 20210325
